FAERS Safety Report 7747521-1 (Version None)
Quarter: 2011Q3

REPORT INFORMATION
  Report Type: 
  Country: None (occurrence: None)
  Receive Date: 20110913
  Receipt Date: 20110906
  Transmission Date: 20111222
  Serious: Yes (Hospitalization)
  Sender: FDA-Public Use
  Company Number: GB-PFIZER INC-2011209147

PATIENT
  Age: 33 Year
  Sex: Female

DRUGS (7)
  1. LANSOPRAZOLE [Suspect]
     Indication: GASTROOESOPHAGEAL REFLUX PROPHYLAXIS
     Dosage: 30 MG, 1X/DAY
     Route: 048
     Dates: start: 20100907, end: 20100928
  2. RITUXIMAB [Suspect]
     Dosage: 375 MG/M2, 2X/WEEK
     Route: 041
     Dates: start: 20100917, end: 20100924
  3. ROMIPLOSTIM [Suspect]
     Indication: IDIOPATHIC THROMBOCYTOPENIC PURPURA
     Dosage: 1 MG/KG, UNK
     Route: 058
     Dates: start: 20100920, end: 20100920
  4. TRANEXAMIC ACID [Suspect]
     Dosage: 1 DF, 4X/DAY
     Route: 048
     Dates: start: 20100922, end: 20100928
  5. IMMUNOGLOBULINS [Suspect]
     Dosage: 1000 MG/KG, 1X/DAY
     Route: 042
     Dates: start: 20100922, end: 20100923
  6. DEXAMETHASONE [Concomitant]
     Indication: ANTIEMETIC SUPPORTIVE CARE
     Dosage: UNK
     Route: 048
     Dates: start: 20100907, end: 20101010
  7. NORETHISTERONE [Suspect]
     Dosage: 5 MG, 3X/DAY
     Route: 048
     Dates: start: 20100922, end: 20100928

REACTIONS (2)
  - RASH MACULO-PAPULAR [None]
  - PURPURA [None]
